FAERS Safety Report 5485115-1 (Version None)
Quarter: 2007Q4

REPORT INFORMATION
  Report Type: 
  Country: None (occurrence: None)
  Receive Date: 20071015
  Receipt Date: 20071003
  Transmission Date: 20080405
  Serious: No
  Sender: FDA-Public Use
  Company Number: BR-JNJFOC-20070800659

PATIENT
  Age: 13 Year
  Sex: Female
  Weight: 30 kg

DRUGS (2)
  1. ORTHO EVRA [Suspect]
     Indication: POOR PERSONAL HYGIENE
     Route: 062
  2. ORTHO EVRA [Suspect]
     Indication: MENSTRUATION IRREGULAR
     Route: 062

REACTIONS (4)
  - INAPPROPRIATE SCHEDULE OF DRUG ADMINISTRATION [None]
  - OFF LABEL USE [None]
  - PHARMACEUTICAL PRODUCT COMPLAINT [None]
  - VAGINAL HAEMORRHAGE [None]
